FAERS Safety Report 6615350-8 (Version None)
Quarter: 2010Q1

REPORT INFORMATION
  Report Type: 
  Country: None (occurrence: None)
  Receive Date: 20100305
  Receipt Date: 20090821
  Transmission Date: 20100710
  Serious: No
  Sender: FDA-Public Use
  Company Number: A0801909A

PATIENT
  Sex: Female

DRUGS (4)
  1. ROPINIROLE [Suspect]
     Indication: RESTLESS LEGS SYNDROME
     Dosage: 4MG FOUR TIMES PER DAY
     Route: 048
  2. ACCOLATE [Concomitant]
  3. FORADIL [Concomitant]
  4. PROAIR HFA [Concomitant]

REACTIONS (1)
  - DYSPEPSIA [None]
